FAERS Safety Report 4932396-6 (Version None)
Quarter: 2006Q1

REPORT INFORMATION
  Report Type: 
  Country: None (occurrence: None)
  Receive Date: 20060228
  Receipt Date: 20060216
  Transmission Date: 20060701
  Serious: Yes (Life-Threatening)
  Sender: FDA-Public Use
  Company Number: 200610038BFR

PATIENT
  Age: 75 Year
  Sex: Male
  Weight: 82 kg

DRUGS (11)
  1. CIFLOX (CIPROFLOXACIN) [Suspect]
     Indication: LUNG DISORDER
     Dates: start: 20051125, end: 20051130
  2. CORDARONE [Suspect]
     Indication: ATRIAL FIBRILLATION
     Dosage: ORAL
     Route: 048
     Dates: start: 20051113, end: 20051123
  3. CORDARONE [Suspect]
     Indication: ATRIAL FLUTTER
     Dosage: ORAL
     Route: 048
     Dates: start: 20051113, end: 20051123
  4. VFEND [Concomitant]
     Indication: ASPERGILLOSIS
     Dosage: 200  MG, INTRAVENOUS
     Route: 042
     Dates: start: 20051117, end: 20051129
  5. CANCIDAS [Suspect]
     Indication: ASPERGILLOSIS
     Dosage: 50 MG, INTRAVENOUS
     Route: 042
     Dates: start: 20051127, end: 20051209
  6. OMEPRAZOLE [Suspect]
     Dosage: INTRAVENOUS
     Route: 042
     Dates: start: 20051124, end: 20051209
  7. TARGOCID [Suspect]
     Dosage: INTRAVENOUS
     Route: 042
     Dates: start: 20051125
  8. CEFTAZIDIME SODIUM [Suspect]
     Dosage: INTRAVENOUS
     Route: 042
     Dates: start: 20051114
  9. PROPRANOLOL [Concomitant]
  10. ARACYTINE [Concomitant]
  11. IDARUBICIN HCL [Concomitant]

REACTIONS (5)
  - ARRHYTHMIA [None]
  - BRADYCARDIA [None]
  - CARDIAC ARREST [None]
  - ELECTROCARDIOGRAM QT PROLONGED [None]
  - INFECTION [None]
